FAERS Safety Report 7915238-6 (Version None)
Quarter: 2011Q4

REPORT INFORMATION
  Report Type: 
  Country: None (occurrence: None)
  Receive Date: 20111115
  Receipt Date: 20111108
  Transmission Date: 20120403
  Serious: Yes (Hospitalization)
  Sender: FDA-Public Use
  Company Number: US-UCBSA-045398

PATIENT
  Age: 13 Year
  Sex: Male
  Weight: 35 kg

DRUGS (9)
  1. CIMZIA [Suspect]
     Dosage: DOSE: UNKNOWN
     Route: 058
     Dates: start: 20101028
  2. CALCIUM [Concomitant]
  3. FISH OIL [Concomitant]
  4. REMICADE [Suspect]
     Indication: INFLAMMATORY BOWEL DISEASE
     Dosage: FORM: LYOPHILIZED POWDER; RECEIVED THE 2ND DOSE ON 10-JAN-2011
     Route: 042
     Dates: start: 20101227
  5. VITAMIN B-12 [Concomitant]
  6. PROBIOTICS [Concomitant]
  7. FERROUS SULFATE TAB [Concomitant]
  8. VITAMIN D [Concomitant]
  9. JUICE PLUS [Concomitant]

REACTIONS (2)
  - CLOSTRIDIAL INFECTION [None]
  - SMALL INTESTINAL OBSTRUCTION [None]
